FAERS Safety Report 19186585 (Version 1)
Quarter: 2021Q2

REPORT INFORMATION
  Report Type: Report from Study
  Country: ID (occurrence: ID)
  Receive Date: 20210428
  Receipt Date: 20210428
  Transmission Date: 20210717
  Serious: Yes (Death, Hospitalization, Other)
  Sender: FDA-Public Use
  Company Number: ID-ASTRAZENECA-2021A336528

PATIENT
  Age: 18594 Day
  Sex: Female

DRUGS (1)
  1. FASLODEX [Suspect]
     Active Substance: FULVESTRANT
     Indication: BREAST CANCER METASTATIC
     Dosage: 500.0MG UNKNOWN
     Route: 030
     Dates: start: 20200115

REACTIONS (4)
  - Metastases to bone [Unknown]
  - Pleural effusion [Unknown]
  - Death [Fatal]
  - Metastases to lung [Unknown]

NARRATIVE: CASE EVENT DATE: 20210420
